FAERS Safety Report 8241818-7 (Version None)
Quarter: 2012Q1

REPORT INFORMATION
  Report Type: 
  Country: None (occurrence: None)
  Receive Date: 20120328
  Receipt Date: 20120322
  Transmission Date: 20120608
  Serious: Yes (Hospitalization)
  Sender: FDA-Public Use
  Company Number: SE-ASTRAZENECA-2012SE18029

PATIENT
  Age: 72 Year
  Sex: Male

DRUGS (7)
  1. PREDNISOLONE [Concomitant]
  2. METOPROLOL SUCCINATE [Concomitant]
  3. RAMIPRIL [Concomitant]
  4. BRILIQUE [Suspect]
     Indication: CARDIAC DISORDER
     Route: 048
  5. LIPITOR [Concomitant]
  6. NEORAL [Interacting]
     Route: 048
  7. ARIXTRA [Concomitant]

REACTIONS (3)
  - DRUG THERAPEUTIC INCOMPATIBILITY [None]
  - MYOCARDIAL INFARCTION [None]
  - POTENTIATING DRUG INTERACTION [None]
